FAERS Safety Report 6702845-1 (Version None)
Quarter: 2010Q2

REPORT INFORMATION
  Report Type: 
  Country: None (occurrence: None)
  Receive Date: 20100429
  Receipt Date: 20100429
  Transmission Date: 20101027
  Serious: Yes (Life-Threatening, Hospitalization, Disabling)
  Sender: FDA-Public Use
  Company Number: None

PATIENT
  Age: 82 Year
  Sex: Male
  Weight: 68.0396 kg

DRUGS (2)
  1. SIMVASTATIN [Suspect]
     Indication: BLOOD CHOLESTEROL INCREASED
     Dosage: 2 40MG ONCE DAILY PO
     Route: 048
     Dates: start: 20091115, end: 20091130
  2. SIMVASTATIN [Concomitant]

REACTIONS (6)
  - ABASIA [None]
  - BEDRIDDEN [None]
  - CHROMATURIA [None]
  - HYPERSOMNIA [None]
  - WALKING AID USER [None]
  - WHEELCHAIR USER [None]
